FAERS Safety Report 16442365 (Version 1)
Quarter: 2019Q2

REPORT INFORMATION
  Report Type: Report from Study
  Country: None (occurrence: US)
  Receive Date: 20190617
  Receipt Date: 20190617
  Transmission Date: 20190711
  Serious: No
  Sender: FDA-Public Use
  Company Number: US-US WORLDMEDS, LLC-USW201904-000776

PATIENT
  Age: 62 Year
  Sex: Male

DRUGS (2)
  1. ASPIRIN. [Concomitant]
     Active Substance: ASPIRIN
  2. APOKYN [Suspect]
     Active Substance: APOMORPHINE HYDROCHLORIDE
     Indication: PARKINSON^S DISEASE
     Route: 058
     Dates: start: 20190413

REACTIONS (3)
  - Yawning [Recovered/Resolved]
  - Head discomfort [Recovered/Resolved]
  - Injection site bruising [Recovering/Resolving]

NARRATIVE: CASE EVENT DATE: 20190413
